FAERS Safety Report 7273091-0 (Version None)
Quarter: 2011Q1

REPORT INFORMATION
  Report Type: 
  Country: None (occurrence: None)
  Receive Date: 20110126
  Receipt Date: 20110119
  Transmission Date: 20110831
  Serious: Yes (Hospitalization)
  Sender: FDA-Public Use
  Company Number: GER/UKI/10/0016529

PATIENT
  Age: 64 Year
  Sex: Male

DRUGS (3)
  1. SERTRALINE (SERTRALINE) [Suspect]
     Indication: PRODUCT USED FOR UNKNOWN INDICATION
     Dosage: 50 MG, 1 IN 1 D, ORAL
     Route: 048
     Dates: end: 20101012
  2. CO-CODAMOL (PANADEINE CO) [Concomitant]
  3. OMEPRAZOLE [Concomitant]

REACTIONS (3)
  - PEPTIC ULCER HAEMORRHAGE [None]
  - CHOLECYSTITIS [None]
  - HELICOBACTER INFECTION [None]
